FAERS Safety Report 5086507-5 (Version None)
Quarter: 2006Q3

REPORT INFORMATION
  Report Type: 
  Country: None (occurrence: None)
  Receive Date: 20060821
  Receipt Date: 20060821
  Transmission Date: 20061208
  Serious: No
  Sender: FDA-Public Use
  Company Number: None

PATIENT
  Sex: Male
  Weight: 94 kg

DRUGS (2)
  1. PREDNISONE TAB [Suspect]
     Indication: ADVERSE DRUG REACTION
     Dosage: 40MG   TWICE DAILY   PO
     Route: 048
     Dates: start: 20060818, end: 20060818
  2. PREDNISONE TAB [Suspect]
     Indication: RASH
     Dosage: 40MG   TWICE DAILY   PO
     Route: 048
     Dates: start: 20060818, end: 20060818

REACTIONS (2)
  - EYE INFECTION [None]
  - PHOTOPSIA [None]
